FAERS Safety Report 8326942-2 (Version None)
Quarter: 2012Q2

REPORT INFORMATION
  Report Type: 
  Country: None (occurrence: None)
  Receive Date: 20120501
  Receipt Date: 20120426
  Transmission Date: 20120825
  Serious: Yes (Hospitalization, Disabling, Other)
  Sender: FDA-Public Use
  Company Number: US-ELI_LILLY_AND_COMPANY-US201204009717

PATIENT
  Sex: Male

DRUGS (7)
  1. HUMALOG [Suspect]
     Dosage: 13 U, EACH MORNING
     Dates: start: 20120322
  2. LEVEMIR [Concomitant]
     Dosage: UNK
  3. HUMALOG [Suspect]
     Dosage: UNK UNK, PRN AT LUNCHTIME
     Route: 058
     Dates: start: 19570101, end: 20120322
  4. HUMALOG [Suspect]
     Indication: TYPE 1 DIABETES MELLITUS
     Dosage: 13 U, EACH MORNING
     Route: 058
     Dates: start: 19570101, end: 20120322
  5. HUMALOG [Suspect]
     Dosage: 2 U, WITH DINNER
     Route: 058
     Dates: start: 19570101, end: 20120322
  6. HUMALOG [Suspect]
     Dosage: UNK, PRN AT LUNCHTIME
     Dates: start: 20120322
  7. HUMALOG [Suspect]
     Dosage: 2 U, WITH DINNER
     Dates: start: 20120322

REACTIONS (8)
  - MUSCLE DISORDER [None]
  - MYOCARDIAL INFARCTION [None]
  - VASCULAR GRAFT [None]
  - BALANCE DISORDER [None]
  - NEPHRECTOMY [None]
  - RENAL IMPAIRMENT [None]
  - LEG AMPUTATION [None]
  - FALL [None]
